FAERS Safety Report 5750918-2 (Version None)
Quarter: 2008Q2

REPORT INFORMATION
  Report Type: 
  Country: None (occurrence: None)
  Receive Date: 20080528
  Receipt Date: 20080519
  Transmission Date: 20081010
  Serious: No
  Sender: FDA-Public Use
  Company Number: DE-BAXTER-2008BH003052

PATIENT
  Age: 38 Year
  Sex: Male
  Weight: 79 kg

DRUGS (16)
  1. GAMMAGARD LIQUID [Suspect]
     Indication: HYPOGAMMAGLOBULINAEMIA
     Dosage: DOSE UNIT:UNKNOWN
     Route: 065
     Dates: start: 20061201, end: 20080201
  2. GAMMAGARD LIQUID [Suspect]
     Dosage: DOSE UNIT:UNKNOWN
     Route: 065
     Dates: start: 20061201, end: 20080201
  3. GAMMAGARD LIQUID [Suspect]
     Dosage: DOSE UNIT:UNKNOWN
     Route: 065
     Dates: start: 20061201, end: 20080201
  4. GAMMAGARD LIQUID [Suspect]
     Dosage: DOSE UNIT:UNKNOWN
     Route: 065
     Dates: start: 20061201, end: 20080201
  5. GAMMAGARD LIQUID [Suspect]
     Dosage: DOSE UNIT:UNKNOWN
     Route: 065
     Dates: start: 20061201, end: 20080201
  6. GAMMAGARD LIQUID [Suspect]
     Dosage: DOSE UNIT:UNKNOWN
     Route: 065
     Dates: start: 20061201, end: 20080201
  7. GAMMAGARD LIQUID [Suspect]
     Dosage: DOSE UNIT:UNKNOWN
     Route: 065
     Dates: start: 20061201, end: 20080201
  8. GAMMAGARD LIQUID [Suspect]
     Dosage: DOSE UNIT:UNKNOWN
     Route: 065
     Dates: start: 20061201, end: 20080201
  9. GAMMAGARD LIQUID [Suspect]
     Dosage: DOSE UNIT:UNKNOWN
     Route: 065
     Dates: start: 20061201, end: 20080201
  10. GAMMAGARD LIQUID [Suspect]
     Dosage: DOSE UNIT:UNKNOWN
     Route: 065
     Dates: start: 20061201, end: 20080201
  11. GAMMAGARD LIQUID [Suspect]
     Dosage: DOSE UNIT:UNKNOWN
     Route: 065
     Dates: start: 20061201, end: 20080201
  12. GAMMAGARD LIQUID [Suspect]
     Dosage: DOSE UNIT:UNKNOWN
     Route: 065
     Dates: start: 20061201, end: 20080201
  13. GAMMAGARD LIQUID [Suspect]
     Dosage: DOSE UNIT:UNKNOWN
     Route: 065
     Dates: start: 20061201, end: 20080201
  14. GAMMAGARD LIQUID [Suspect]
     Dosage: DOSE UNIT:UNKNOWN
     Route: 065
     Dates: start: 20061201, end: 20080201
  15. GAMMAGARD LIQUID [Suspect]
     Dosage: DOSE UNIT:UNKNOWN
     Route: 065
     Dates: start: 20061201, end: 20080201
  16. GAMMAGARD LIQUID [Suspect]
     Dosage: DOSE UNIT:UNKNOWN
     Route: 065
     Dates: start: 20061201, end: 20080201

REACTIONS (1)
  - HEPATIC ENZYME INCREASED [None]
